FAERS Safety Report 24899135 (Version 1)
Quarter: 2025Q1

REPORT INFORMATION
  Report Type: Spontaneous
  Country: US (occurrence: US)
  Receive Date: 20250129
  Receipt Date: 20250129
  Transmission Date: 20250409
  Serious: Yes (Other)
  Sender: AMGEN
  Company Number: US-AMGEN-USASP2025013658

PATIENT

DRUGS (1)
  1. PREDNISONE [Suspect]
     Active Substance: PREDNISONE
     Indication: Lichen sclerosus
     Route: 065

REACTIONS (4)
  - Major depression [Unknown]
  - Anxiety disorder [Unknown]
  - Depression [Unknown]
  - Off label use [Unknown]
